FAERS Safety Report 17287020 (Version 1)
Quarter: 2020Q1

REPORT INFORMATION
  Report Type: Spontaneous
  Country: US (occurrence: US)
  Receive Date: 20200120
  Receipt Date: 20200120
  Transmission Date: 20200409
  Serious: No
  Sender: FDA-Public Use
  Company Number: NVSC2020US011413

PATIENT
  Age: 89 Year
  Sex: Male
  Weight: 78 kg

DRUGS (4)
  1. ACETAMINOPHEN (PARACETAMOL) [Interacting]
     Active Substance: ACETAMINOPHEN
     Indication: INFECTION PROPHYLAXIS
  2. MOXIFLOXACIN. [Interacting]
     Active Substance: MOXIFLOXACIN
     Indication: INFECTION PROPHYLAXIS
     Dosage: 400 MG
     Route: 065
  3. ACETAMINOPHEN (PARACETAMOL) [Suspect]
     Active Substance: ACETAMINOPHEN
     Indication: PRODUCT USED FOR UNKNOWN INDICATION
     Dosage: 1000 MG, Q6H
     Route: 065
  4. PHYTONADIONE. [Suspect]
     Active Substance: PHYTONADIONE
     Indication: ANTICOAGULANT THERAPY
     Dosage: 2.5 MG
     Route: 048

REACTIONS (2)
  - Drug interaction [Unknown]
  - Product use in unapproved indication [Unknown]
